FAERS Safety Report 9396026 (Version 3)
Quarter: 2013Q3

REPORT INFORMATION
  Report Type: Spontaneous
  Country: NZ (occurrence: NZ)
  Receive Date: 20130711
  Receipt Date: 20130917
  Transmission Date: 20140515
  Serious: Yes (Death, Hospitalization)
  Sender: FDA-Public Use
  Company Number: NZ-CELGENEUS-118-21880-13070253

PATIENT
  Age: 68 Year
  Sex: Male
  Weight: 81.6 kg

DRUGS (17)
  1. REVLIMID [Suspect]
     Indication: PLASMA CELL MYELOMA
     Dosage: 15 MILLIGRAM
     Route: 048
     Dates: start: 20130121
  2. REVLIMID [Suspect]
     Dosage: 15 MILLIGRAM
     Route: 048
     Dates: end: 20130626
  3. MLN9708/PLACEBO [Suspect]
     Indication: PLASMA CELL MYELOMA
     Route: 048
     Dates: start: 20130121, end: 20130626
  4. DEXAMETHASONE [Suspect]
     Indication: PLASMA CELL MYELOMA
     Route: 048
     Dates: start: 20130121, end: 20130626
  5. PREDNISONE [Concomitant]
     Indication: ANAEMIA
     Dosage: 20 MILLIGRAM
     Route: 065
  6. GTN [Concomitant]
     Indication: CHEST PAIN
     Route: 065
     Dates: start: 20130616
  7. GTN [Concomitant]
     Dosage: 13.25, 13.30, 13.35
     Route: 065
     Dates: start: 20130626, end: 20130626
  8. GTN [Concomitant]
     Dosage: SPRAYS
     Route: 060
     Dates: start: 20130626
  9. PANADOL [Concomitant]
     Indication: PAIN
     Dosage: PRN, MAX 4G/24 HRS
     Route: 041
     Dates: start: 20130626
  10. PANADOL [Concomitant]
     Dosage: 1 GRAM
     Route: 048
  11. METOPROLOL [Concomitant]
     Indication: PRODUCT USED FOR UNKNOWN INDICATION
     Dosage: 47.5 MILLIGRAM
     Route: 048
     Dates: start: 20130625
  12. ALLOPURINOL [Concomitant]
     Indication: PRODUCT USED FOR UNKNOWN INDICATION
     Dosage: 300 MILLIGRAM
     Route: 048
     Dates: start: 20130625
  13. METFORMIN [Concomitant]
     Indication: PRODUCT USED FOR UNKNOWN INDICATION
     Dosage: 1000 MILLIGRAM
     Route: 048
     Dates: start: 20130625
  14. LEVOTHYROXINE [Concomitant]
     Indication: PRODUCT USED FOR UNKNOWN INDICATION
     Dosage: 150 MILLIGRAM
     Route: 048
     Dates: start: 20130625
  15. ACICLOVIR [Concomitant]
     Indication: PRODUCT USED FOR UNKNOWN INDICATION
     Dosage: 800 MILLIGRAM
     Route: 048
     Dates: start: 20130625
  16. IBUPROFEN [Concomitant]
     Indication: PAIN
     Route: 048
  17. SALBUTAMOL [Concomitant]
     Indication: BLOOD POTASSIUM INCREASED
     Dosage: 60 MILLIGRAM
     Route: 055
     Dates: start: 20130626

REACTIONS (2)
  - Cardiogenic shock [Fatal]
  - Acute myocardial infarction [Fatal]
